FAERS Safety Report 8799266 (Version 2)
Quarter: 2013Q2

REPORT INFORMATION
  Report Type: Spontaneous
  Country: GB (occurrence: None)
  Receive Date: 20120914
  Receipt Date: 20130529
  Transmission Date: 20140414
  Serious: Yes (Other)
  Sender: FDA-Public Use
  Company Number: GB-DEXPHARM-20121240

PATIENT
  Age: 61 Year
  Sex: Female

DRUGS (5)
  1. OMEPRAZOLE [Suspect]
     Indication: GASTROOESOPHAGEAL REFLUX DISEASE
     Route: 048
  2. ADCAL-D3 [Concomitant]
  3. CETIRIZINE [Concomitant]
  4. SUCRALFATE [Concomitant]
  5. VITAMIN B12 [Concomitant]

REACTIONS (31)
  - Breast enlargement [None]
  - Breast discolouration [None]
  - Breast disorder female [None]
  - Dyspnoea [None]
  - Confusional state [None]
  - Depression [None]
  - Dry eye [None]
  - Dry mouth [None]
  - Fall [None]
  - Headache [None]
  - Muscular weakness [None]
  - Gastrooesophageal reflux disease [None]
  - Erythema [None]
  - Local swelling [None]
  - Anaemia [None]
  - Tremor [None]
  - Angioedema [None]
  - Visual impairment [None]
  - Photopsia [None]
  - Vitamin D deficiency [None]
  - Vitreous detachment [None]
  - Weight decreased [None]
  - Pain [None]
  - Osteopenia [None]
  - Skin burning sensation [None]
  - Intestinal haemorrhage [None]
  - Eye haemorrhage [None]
  - Mouth haemorrhage [None]
  - Cellulitis [None]
  - Eye haemorrhage [None]
  - Angiopathy [None]
